FAERS Safety Report 4935314-X (Version None)
Quarter: 2006Q1

REPORT INFORMATION
  Report Type: 
  Country: None (occurrence: None)
  Receive Date: 20060307
  Receipt Date: 20050824
  Transmission Date: 20060701
  Serious: Yes (Death, Hospitalization)
  Sender: FDA-Public Use
  Company Number: US-MERCK-0508USA04305

PATIENT
  Age: 51 Year
  Sex: Male
  Weight: 129 kg

DRUGS (1)
  1. VIOXX [Suspect]
     Route: 048
     Dates: start: 20021101, end: 20040402

REACTIONS (13)
  - ACUTE MYOCARDIAL INFARCTION [None]
  - ACUTE RESPIRATORY DISTRESS SYNDROME [None]
  - ANGIOPATHY [None]
  - ARTERIOSCLEROSIS CORONARY ARTERY [None]
  - CARDIOMEGALY [None]
  - GLOMERULONEPHRITIS CHRONIC [None]
  - HEPATIC CONGESTION [None]
  - NEPHRITIS [None]
  - ORGAN FAILURE [None]
  - PORTAL TRIADITIS [None]
  - PULMONARY CONGESTION [None]
  - PULMONARY HAEMORRHAGE [None]
  - RENAL FAILURE [None]
